FAERS Safety Report 21748427 (Version 2)
Quarter: 2023Q2

REPORT INFORMATION
  Report Type: Report from Study
  Country: NO (occurrence: NO)
  Receive Date: 20221219
  Receipt Date: 20230424
  Transmission Date: 20230722
  Serious: Yes (Hospitalization)
  Sender: FDA-Public Use
  Company Number: NO-002147023-NVSC2022NO292394

PATIENT
  Age: 71 Year
  Sex: Female

DRUGS (24)
  1. MEKINIST [Suspect]
     Active Substance: TRAMETINIB DIMETHYL SULFOXIDE
     Indication: Neoplasm malignant
     Dosage: 2 MG
     Route: 048
     Dates: start: 20220201, end: 20220228
  2. MEKINIST [Suspect]
     Active Substance: TRAMETINIB DIMETHYL SULFOXIDE
     Dosage: 2 MG
     Route: 048
     Dates: start: 20220301, end: 20220329
  3. MEKINIST [Suspect]
     Active Substance: TRAMETINIB DIMETHYL SULFOXIDE
     Dosage: 2 MG
     Route: 048
     Dates: start: 20220329, end: 20220421
  4. MEKINIST [Suspect]
     Active Substance: TRAMETINIB DIMETHYL SULFOXIDE
     Dosage: 1 MG
     Route: 048
     Dates: start: 20220422, end: 20220503
  5. DABRAFENIB [Suspect]
     Active Substance: DABRAFENIB
     Indication: Neoplasm malignant
     Dosage: 150 MG
     Route: 048
     Dates: start: 20220201, end: 20220228
  6. DABRAFENIB [Suspect]
     Active Substance: DABRAFENIB
     Dosage: 300 MG
     Route: 048
     Dates: start: 20220301, end: 20220328
  7. DABRAFENIB [Suspect]
     Active Substance: DABRAFENIB
     Dosage: 200 MG
     Route: 048
     Dates: start: 20220329, end: 20220421
  8. DABRAFENIB [Suspect]
     Active Substance: DABRAFENIB
     Dosage: 200 MG
     Route: 048
     Dates: start: 20220422, end: 20220503
  9. CALCIUM CARBONATE\CHOLECALCIFEROL [Concomitant]
     Active Substance: CALCIUM CARBONATE\CHOLECALCIFEROL
     Indication: Osteoporosis
     Dosage: 1 G
     Route: 065
     Dates: start: 20130301
  10. PANTOPRAZOLE SODIUM [Concomitant]
     Active Substance: PANTOPRAZOLE SODIUM
     Indication: Gastric ulcer
     Dosage: 20 MG
     Route: 065
     Dates: start: 2014
  11. NYCOPLUS [Concomitant]
     Indication: Rheumatoid arthritis
     Dosage: 75 UG
     Route: 065
     Dates: start: 2017
  12. NYCOPLUS MAGNESIUM [Concomitant]
     Indication: Rheumatoid arthritis
     Dosage: 350 MG
     Route: 065
  13. ACETAMINOPHEN [Concomitant]
     Active Substance: ACETAMINOPHEN
     Indication: Pain
     Dosage: 1 G
     Route: 065
     Dates: start: 202102
  14. SODIUM PICOSULFATE [Concomitant]
     Active Substance: SODIUM PICOSULFATE
     Indication: Constipation
     Dosage: 10 OTHER
     Route: 065
     Dates: start: 20211015
  15. LEVOTHYROXINE SODIUM [Concomitant]
     Active Substance: LEVOTHYROXINE SODIUM
     Indication: Hypothyroidism
     Dosage: 125 UG
     Route: 065
     Dates: start: 20210218
  16. VI-SIBLIN [Concomitant]
     Indication: Constipation
     Dosage: 610 MG
     Route: 065
     Dates: start: 20211229
  17. VITAMIN B [Concomitant]
     Active Substance: VITAMIN B
     Indication: Product used for unknown indication
     Dosage: 1 OTHER
     Route: 065
     Dates: start: 20211231
  18. MELATONIN [Concomitant]
     Active Substance: MELATONIN
     Indication: Insomnia
     Dosage: 1 MG
     Route: 065
     Dates: start: 20220131
  19. NASONEX [Concomitant]
     Active Substance: MOMETASONE FUROATE
     Indication: Product used for unknown indication
     Dosage: 50 UG
     Route: 065
     Dates: start: 20220222
  20. METOCLOPRAMIDE HYDROCHLORIDE [Concomitant]
     Active Substance: METOCLOPRAMIDE HYDROCHLORIDE
     Indication: Nausea
     Dosage: 10 MG
     Route: 065
     Dates: start: 20220304, end: 20220519
  21. ZOFRAN [Concomitant]
     Active Substance: ONDANSETRON HYDROCHLORIDE
     Indication: Nausea
     Dosage: 8 MG
     Route: 065
     Dates: start: 20220304, end: 20220519
  22. KLORAMFENIKOL [Concomitant]
     Indication: Eye infection
     Dosage: 10 MG
     Route: 065
     Dates: start: 20220311, end: 20220315
  23. VIMOVO [Concomitant]
     Active Substance: ESOMEPRAZOLE MAGNESIUM\NAPROXEN
     Indication: Erythema nodosum
     Dosage: 500/20
     Route: 065
     Dates: start: 20220312, end: 20220315
  24. ELIQUIS [Concomitant]
     Active Substance: APIXABAN
     Indication: Atrial flutter
     Dosage: 5 MG
     Route: 065
     Dates: start: 20220412

REACTIONS (2)
  - Upper respiratory tract infection [Recovered/Resolved]
  - Pyrexia [Recovered/Resolved]

NARRATIVE: CASE EVENT DATE: 20220307
